FAERS Safety Report 5877873-9 (Version None)
Quarter: 2008Q3

REPORT INFORMATION
  Report Type: 
  Country: None (occurrence: None)
  Receive Date: 20080911
  Receipt Date: 20080902
  Transmission Date: 20090109
  Serious: Yes (Life-Threatening, Other)
  Sender: FDA-Public Use
  Company Number: US-JNJFOC-20080605006

PATIENT
  Sex: Male
  Weight: 90.27 kg

DRUGS (4)
  1. REMICADE [Suspect]
     Indication: CROHN'S DISEASE
     Route: 042
  2. PENTASA [Concomitant]
     Indication: CROHN'S DISEASE
  3. FOLIC ACID [Concomitant]
  4. M.V.I. [Concomitant]

REACTIONS (1)
  - NON-SMALL CELL LUNG CANCER [None]
